FAERS Safety Report 9223757 (Version 3)
Quarter: 2013Q2

REPORT INFORMATION
  Report Type: Report from Study
  Country: US (occurrence: US)
  Receive Date: 20130410
  Receipt Date: 20130515
  Transmission Date: 20140414
  Serious: Yes (Other)
  Sender: FDA-Public Use
  Company Number: US-US-EMD SERONO, INC.-7203581

PATIENT
  Age: 44 Year
  Sex: Female

DRUGS (2)
  1. REBIF [Suspect]
     Indication: MULTIPLE SCLEROSIS
     Route: 058
     Dates: start: 20130320
  2. REBIF [Suspect]
     Route: 058
     Dates: end: 20130424

REACTIONS (6)
  - Cardiac flutter [Recovered/Resolved]
  - Dyspnoea [Recovered/Resolved]
  - Hypersomnia [Recovered/Resolved]
  - Migraine [Unknown]
  - Blood pressure increased [Unknown]
  - Chest pain [Not Recovered/Not Resolved]
